FAERS Safety Report 6606454-4 (Version None)
Quarter: 2010Q1

REPORT INFORMATION
  Report Type: 
  Country: None (occurrence: None)
  Receive Date: 20100226
  Receipt Date: 20100215
  Transmission Date: 20100710
  Serious: Yes (Hospitalization)
  Sender: FDA-Public Use
  Company Number: PHHY2009MX59410

PATIENT
  Age: 84 Year
  Sex: Female

DRUGS (2)
  1. DIOVAN [Suspect]
     Indication: HYPERTENSION
     Dosage: 1 TABLET (80 MG) PER DAY
     Route: 065
     Dates: start: 20050101, end: 20091215
  2. DIOVAN [Suspect]
     Dosage: 1 TABLET (80 MG)  PER DAY
     Route: 065
     Dates: start: 20091223

REACTIONS (2)
  - BREAST CANCER [None]
  - MASTECTOMY [None]
